FAERS Safety Report 12611319 (Version 2)
Quarter: 2016Q3

REPORT INFORMATION
  Report Type: Spontaneous
  Country: US (occurrence: US)
  Receive Date: 20160801
  Receipt Date: 20160809
  Transmission Date: 20161109
  Serious: Yes (Other)
  Sender: FDA-Public Use
  Company Number: US-BAUSCH-BL-2016-017925

PATIENT
  Age: 66 Year
  Sex: Male
  Weight: 99.88 kg

DRUGS (3)
  1. XIFAXAN [Suspect]
     Active Substance: RIFAXIMIN
     Indication: DISORIENTATION
     Route: 048
     Dates: start: 201606
  2. XIFAXAN [Suspect]
     Active Substance: RIFAXIMIN
     Indication: DIZZINESS
  3. PROPRANOLOL [Concomitant]
     Active Substance: PROPRANOLOL\PROPRANOLOL HYDROCHLORIDE
     Indication: BLOOD PRESSURE MEASUREMENT
     Dosage: 5 MG HALF TABLET DAILY
     Route: 048

REACTIONS (2)
  - Fatigue [Unknown]
  - Tongue haemorrhage [Unknown]

NARRATIVE: CASE EVENT DATE: 201607
